FAERS Safety Report 7996719-6 (Version None)
Quarter: 2011Q4

REPORT INFORMATION
  Report Type: 
  Country: None (occurrence: None)
  Receive Date: 20111221
  Receipt Date: 20111212
  Transmission Date: 20120403
  Serious: No
  Sender: FDA-Public Use
  Company Number: US-JNJFOC-20111202182

PATIENT
  Sex: Female
  Weight: 56.7 kg

DRUGS (7)
  1. LEVOTHYROXINE SODIUM [Concomitant]
     Indication: THYROID DISORDER
     Route: 048
     Dates: start: 20090101
  2. FENTANYL-100 [Suspect]
     Indication: PAIN
     Route: 062
     Dates: start: 20110701
  3. METOPROLOL TARTRATE [Concomitant]
     Indication: HYPERTENSION
     Route: 048
     Dates: start: 20090101
  4. FENTANYL-100 [Suspect]
     Route: 062
     Dates: start: 20111001
  5. FENTANYL-100 [Suspect]
     Route: 062
     Dates: start: 20110701
  6. FENTANYL-100 [Suspect]
     Indication: PAIN IN EXTREMITY
     Route: 062
     Dates: start: 20111001
  7. DEPLIN [Concomitant]
     Indication: PRODUCT USED FOR UNKNOWN INDICATION
     Route: 048

REACTIONS (11)
  - ABNORMAL LOSS OF WEIGHT [None]
  - NAUSEA [None]
  - SLEEP DISORDER [None]
  - DIZZINESS [None]
  - HEAT THERAPY [None]
  - WRONG TECHNIQUE IN DRUG USAGE PROCESS [None]
  - HOT FLUSH [None]
  - DRUG INEFFECTIVE [None]
  - PALPITATIONS [None]
  - INFREQUENT BOWEL MOVEMENTS [None]
  - MUSCLE SPASMS [None]
